FAERS Safety Report 5960495-9 (Version None)
Quarter: 2008Q4

REPORT INFORMATION
  Report Type: 
  Country: None (occurrence: None)
  Receive Date: 20081120
  Receipt Date: 20080219
  Transmission Date: 20090506
  Serious: No
  Sender: FDA-Public Use
  Company Number: US-ABBOTT-08P-163-0438024-00

PATIENT
  Sex: Female
  Weight: 53.572 kg

DRUGS (9)
  1. BIAXIN [Suspect]
     Indication: PHARYNGITIS
     Route: 048
     Dates: start: 20080111, end: 20080118
  2. HUMIRA [Suspect]
     Indication: CROHN'S DISEASE
     Route: 058
     Dates: start: 20071118, end: 20071118
  3. HUMIRA [Suspect]
     Route: 058
     Dates: start: 20080104, end: 20080104
  4. HUMIRA [Suspect]
     Route: 058
     Dates: start: 20080118
  5. HUMIRA [Suspect]
     Route: 058
     Dates: start: 20080125
  6. CEFPROZIL [Suspect]
     Indication: PHARYNGITIS
     Route: 048
     Dates: start: 20071229, end: 20080108
  7. MULTI-VITAMINS [Concomitant]
     Indication: VITAMIN SUPPLEMENTATION
     Route: 048
  8. IRON [Concomitant]
     Indication: MINERAL SUPPLEMENTATION
     Route: 048
  9. VITRON-C [Concomitant]
     Indication: VITAMIN SUPPLEMENTATION
     Route: 048

REACTIONS (3)
  - DRUG INEFFECTIVE [None]
  - PHARYNGITIS [None]
  - PYREXIA [None]
